FAERS Safety Report 18751648 (Version 1)
Quarter: 2021Q1

REPORT INFORMATION
  Report Type: Spontaneous
  Country: JP (occurrence: JP)
  Receive Date: 20210118
  Receipt Date: 20210118
  Transmission Date: 20210419
  Serious: Yes (Death)
  Sender: FDA-Public Use
  Company Number: NVSJ2021JP001039

PATIENT
  Age: 95 Year
  Sex: Female

DRUGS (1)
  1. ENTRESTO [Suspect]
     Active Substance: SACUBITRIL\VALSARTAN
     Indication: N-TERMINAL PROHORMONE BRAIN NATRIURETIC PEPTIDE INCREASED
     Dosage: 100 MG
     Route: 048
     Dates: start: 202101

REACTIONS (2)
  - Hypotension [Fatal]
  - Acute kidney injury [Fatal]

NARRATIVE: CASE EVENT DATE: 202101
